FAERS Safety Report 5360358-6 (Version None)
Quarter: 2007Q2

REPORT INFORMATION
  Report Type: 
  Country: None (occurrence: None)
  Receive Date: 20070618
  Receipt Date: 20070608
  Transmission Date: 20071010
  Serious: Yes (Disabling)
  Sender: FDA-Public Use
  Company Number: BE-AMGEN-UK219145

PATIENT
  Sex: Male
  Weight: 62.2 kg

DRUGS (10)
  1. ARANESP [Suspect]
     Route: 058
     Dates: start: 20050224
  2. ALLOPURINOL [Suspect]
     Route: 048
     Dates: start: 20060823
  3. ENALAPRIL MALEATE [Suspect]
     Route: 048
     Dates: start: 20020427
  4. COLECALCIFEROL [Concomitant]
     Route: 048
     Dates: start: 20061122
  5. SODIUM BICARBONATE [Concomitant]
     Route: 048
     Dates: start: 20040826
  6. FLUOR [Concomitant]
     Route: 048
     Dates: start: 20020218
  7. LIPITOR [Concomitant]
     Route: 048
     Dates: start: 20000726
  8. SANDIMMUNE [Concomitant]
     Route: 048
     Dates: start: 19990417
  9. CELLCEPT [Concomitant]
     Route: 048
     Dates: start: 20011205
  10. NILSTAT [Concomitant]
     Route: 048
     Dates: start: 19990419

REACTIONS (2)
  - ANAEMIA [None]
  - APLASIA PURE RED CELL [None]
